FAERS Safety Report 22338178 (Version 1)
Quarter: 2023Q2

REPORT INFORMATION
  Report Type: Spontaneous
  Country: US (occurrence: None)
  Receive Date: 20230517
  Receipt Date: 20230517
  Transmission Date: 20230721
  Serious: No
  Sender: FDA-Public Use
  Company Number: None

PATIENT
  Age: 91 Year
  Sex: Female

DRUGS (1)
  1. BOTOX [Suspect]
     Active Substance: ONABOTULINUMTOXINA
     Dosage: OTHER STRENGTH : 100 UNIT;?OTHER QUANTITY : 100 UNITS;?OTHER FREQUENCY : UNKNOWN;?
     Route: 030

REACTIONS (2)
  - Fall [None]
  - Skin laceration [None]

NARRATIVE: CASE EVENT DATE: 20230514
